FAERS Safety Report 10705918 (Version 5)
Quarter: 2015Q3

REPORT INFORMATION
  Report Type: Spontaneous
  Country: IT (occurrence: IT)
  Receive Date: 20150113
  Receipt Date: 20150903
  Transmission Date: 20151125
  Serious: Yes (Hospitalization)
  Sender: FDA-Public Use
  Company Number: IT-ROCHE-1518825

PATIENT
  Age: 86 Year
  Sex: Female

DRUGS (6)
  1. OMEPRAZOLE. [Concomitant]
     Active Substance: OMEPRAZOLE
     Route: 048
  2. CELLCEPT [Suspect]
     Active Substance: MYCOPHENOLATE MOFETIL\MYCOPHENOLATE MOFETIL HYDROCHLORIDE
     Indication: SYSTEMIC SCLEROSIS
     Dosage: 50 TABLETS 500 MG
     Route: 048
     Dates: start: 20050101
  3. DIBASE [Concomitant]
     Active Substance: CHOLECALCIFEROL
     Dosage: 10,000 IU//ML ORAL DROPS SOLUTION IN 10 ML BOTTLE WITH DOPPLER
     Route: 048
  4. DELTACORTENE [Suspect]
     Active Substance: PREDNISONE
     Indication: SYSTEMIC SCLEROSIS
     Dosage: 5 MG TABLETS 10 TABLETS
     Route: 048
     Dates: start: 20050101
  5. SINVACOR [Concomitant]
     Active Substance: SIMVASTATIN
     Dosage: 20 FILM COATED TABLETS
     Route: 048
  6. METFORAL [Concomitant]
     Active Substance: METFORMIN HYDROCHLORIDE
     Dosage: 30 FILM COATED TABLETS OF 850 MG EACH
     Route: 048

REACTIONS (1)
  - Pneumonitis [Recovering/Resolving]

NARRATIVE: CASE EVENT DATE: 20150105
